FAERS Safety Report 9114302 (Version 1)
Quarter: 2013Q1

REPORT INFORMATION
  Report Type: Spontaneous
  Country: FR (occurrence: FR)
  Receive Date: 20130208
  Receipt Date: 20130208
  Transmission Date: 20140127
  Serious: Yes (Hospitalization)
  Sender: FDA-Public Use
  Company Number: FR-009507513-1302FRA001432

PATIENT
  Age: 90 Year
  Sex: Male

DRUGS (6)
  1. CHIBRO-PROSCAR [Suspect]
     Dosage: UNK
     Route: 048
     Dates: end: 20030515
  2. PREVISCAN [Suspect]
     Dosage: 0.25 DF, QD
     Route: 048
     Dates: start: 20030425, end: 20030512
  3. ZESTRIL [Suspect]
     Dosage: 20 MG, QD
     Route: 048
     Dates: end: 20030512
  4. AMINOPHYLLINE\THEOPHYLLINE [Suspect]
     Dosage: 300 MG, BID
     Route: 048
     Dates: end: 20030512
  5. LASILIX [Suspect]
     Dosage: 2 DF, QD
     Route: 048
     Dates: end: 20030512
  6. JOSIR [Suspect]
     Dosage: UNK
     Route: 048
     Dates: end: 20030515

REACTIONS (1)
  - Tubulointerstitial nephritis [Recovered/Resolved]
